FAERS Safety Report 4764795-X (Version None)
Quarter: 2005Q3

REPORT INFORMATION
  Report Type: 
  Country: None (occurrence: None)
  Receive Date: 20050909
  Receipt Date: 20050902
  Transmission Date: 20060218
  Serious: Yes (Other)
  Sender: FDA-Public Use
  Company Number: PHBS2005IT13082

PATIENT
  Age: 58 Year
  Sex: Male

DRUGS (3)
  1. DOCETAXEL [Concomitant]
     Dosage: 118 MG/D
     Route: 042
     Dates: start: 20050228, end: 20050613
  2. DECAPEPTYL [Concomitant]
     Dosage: 11.25 MG/D
     Route: 030
  3. ZOMETA [Suspect]
     Dosage: 4 MG, QMO
     Route: 042
     Dates: start: 20041001, end: 20050627

REACTIONS (1)
  - ASEPTIC NECROSIS BONE [None]
